FAERS Safety Report 9711657 (Version 1)
Quarter: 2013Q4

REPORT INFORMATION
  Report Type: Spontaneous
  Country: US (occurrence: US)
  Receive Date: 20131126
  Receipt Date: 20131126
  Transmission Date: 20140711
  Serious: No
  Sender: FDA-Public Use
  Company Number: US-BRISTOL-MYERS SQUIBB COMPANY-19084755

PATIENT
  Age: 63 Year
  Sex: Male
  Weight: 67.12 kg

DRUGS (2)
  1. BYDUREON [Suspect]
     Indication: TYPE 2 DIABETES MELLITUS
     Dosage: DURATION-4 OR 5 MONTHS
  2. LANTUS [Concomitant]
     Dosage: 1DF= 6 TO 10UNITS

REACTIONS (1)
  - Injection site nodule [Recovering/Resolving]
